FAERS Safety Report 5205739-6 (Version None)
Quarter: 2007Q1

REPORT INFORMATION
  Report Type: 
  Country: None (occurrence: None)
  Receive Date: 20070105
  Receipt Date: 20070105
  Transmission Date: 20070707
  Serious: Yes (Hospitalization)
  Sender: FDA-Public Use
  Company Number: None

PATIENT
  Sex: Male
  Weight: 83.0083 kg

DRUGS (9)
  1. LENALIDOMIDE 15 MG [Suspect]
     Indication: MULTIPLE MYELOMA
     Dosage: 15MG DAILY PO
     Route: 048
     Dates: start: 20060909
  2. AMTRIPTYLINE [Concomitant]
  3. ASPIRIN [Concomitant]
  4. BISACODYL EC [Concomitant]
  5. DEXAMETHASONE [Concomitant]
  6. FELODIPINE [Concomitant]
  7. GLIPIZIDE [Concomitant]
  8. OXYCODONE HCL [Concomitant]
  9. VARDENAFIL HCL [Concomitant]

REACTIONS (12)
  - BLOOD GLUCOSE ABNORMAL [None]
  - CONFUSIONAL STATE [None]
  - CONSTIPATION [None]
  - ELECTROLYTE IMBALANCE [None]
  - FATIGUE [None]
  - LOSS OF CONSCIOUSNESS [None]
  - NAUSEA [None]
  - ORAL CANDIDIASIS [None]
  - POLYURIA [None]
  - PRESYNCOPE [None]
  - VOMITING [None]
  - WEIGHT DECREASED [None]
